FAERS Safety Report 25787457 (Version 1)
Quarter: 2025Q3

REPORT INFORMATION
  Report Type: Spontaneous
  Country: GB (occurrence: GB)
  Receive Date: 20250910
  Receipt Date: 20250910
  Transmission Date: 20251021
  Serious: Yes (Disabling, Other)
  Sender: CHEPLAPHARM
  Company Number: None

PATIENT
  Sex: Male

DRUGS (1)
  1. OLANZAPINE [Suspect]
     Active Substance: OLANZAPINE

REACTIONS (8)
  - Psychotic disorder [Unknown]
  - Speech disorder [Unknown]
  - Mental impairment [Unknown]
  - Disability [Unknown]
  - Vomiting [Unknown]
  - Alopecia [Unknown]
  - Product dispensing issue [Unknown]
  - Product prescribing issue [Unknown]
